FAERS Safety Report 9357883 (Version 1)
Quarter: 2013Q2

REPORT INFORMATION
  Report Type: Report from Study
  Country: PK (occurrence: PK)
  Receive Date: 20130620
  Receipt Date: 20130620
  Transmission Date: 20140414
  Serious: Yes (Other)
  Sender: FDA-Public Use
  Company Number: PK-009507513-1306PAK008546

PATIENT
  Sex: 0

DRUGS (2)
  1. INTERFERON ALFA-2B [Suspect]
     Indication: HEPATITIS C VIRUS TEST POSITIVE
     Dosage: 3 MILLION IU, TIW
  2. RIBAVIRIN [Suspect]
     Indication: CHRONIC HEPATITIS C
     Dosage: 1000 MG/DAY IN PATIENTS LESS THAN 75 KG:1200 MG/DAY

REACTIONS (1)
  - Adverse drug reaction [Unknown]
